FAERS Safety Report 8688808 (Version 3)
Quarter: 2012Q4

REPORT INFORMATION
  Report Type: Report from Study
  Country: BR (occurrence: BR)
  Receive Date: 20120727
  Receipt Date: 20120829
  Transmission Date: 20130627
  Serious: Yes (Hospitalization)
  Sender: FDA-Public Use
  Company Number: BR-GILEAD-2012-0058489

PATIENT
  Age: 31 Year
  Sex: Male

DRUGS (7)
  1. TENOFOVIR DISOPROXIL FUMARATE [Suspect]
     Indication: HIV INFECTION
     Dosage: 300 mg, QD
     Dates: start: 20110214
  2. LAMIVUDINE [Suspect]
     Indication: HIV INFECTION
     Dosage: 300 mg, QD
     Dates: start: 20110214
  3. RALTEGRAVIR [Suspect]
     Indication: HIV INFECTION
     Dosage: 800 mg, QD
     Dates: start: 20110214
  4. RIFAMPIN [Suspect]
     Indication: TUBERCULOSIS
     Dosage: 600 mg, QD
     Dates: start: 20110201
  5. ETHAMBUTOL [Suspect]
     Indication: TUBERCULOSIS
     Dosage: 1100 mg, QD
     Dates: start: 20110201
  6. ISONIAZID [Suspect]
     Indication: TUBERCULOSIS
     Dosage: 300 mg, QD
     Dates: start: 20110201
  7. PYRAZINAMIDE [Suspect]
     Indication: TUBERCULOSIS
     Dosage: 600 mg, QD
     Dates: start: 20110201

REACTIONS (1)
  - Deep vein thrombosis [Recovered/Resolved]
